FAERS Safety Report 11980349 (Version 2)
Quarter: 2016Q1

REPORT INFORMATION
  Report Type: Spontaneous
  Country: FR (occurrence: FR)
  Receive Date: 20160129
  Receipt Date: 20160208
  Transmission Date: 20160526
  Serious: Yes (Life-Threatening, Hospitalization)
  Sender: FDA-Public Use
  Company Number: FR-SA-2016SA015084

PATIENT
  Age: 85 Year
  Sex: Male

DRUGS (10)
  1. XARELTO [Suspect]
     Active Substance: RIVAROXABAN
     Indication: ARTHROPATHY
     Route: 048
     Dates: start: 20151204, end: 20151218
  2. GAVISCON [Concomitant]
     Active Substance: ALUMINUM HYDROXIDE\MAGNESIUM CARBONATE
  3. PLAVIX [Suspect]
     Active Substance: CLOPIDOGREL BISULFATE
     Indication: CORONARY ARTERY DISEASE
     Route: 048
     Dates: start: 20120301
  4. ZESTRIL [Concomitant]
     Active Substance: LISINOPRIL
  5. XATRAL LP [Concomitant]
     Active Substance: ALFUZOSIN
  6. PRAVASTATIN [Concomitant]
     Active Substance: PRAVASTATIN\PRAVASTATIN SODIUM
  7. ADENURIC [Concomitant]
     Active Substance: FEBUXOSTAT
  8. LERCAN [Concomitant]
     Active Substance: LERCANIDIPINE
  9. KARDEGIC [Suspect]
     Active Substance: ASPIRIN LYSINE
     Indication: CORONARY ARTERY DISEASE
     Route: 048
     Dates: start: 20120301
  10. TEMERIT [Concomitant]
     Active Substance: NEBIVOLOL

REACTIONS (3)
  - Hypovolaemic shock [Recovered/Resolved]
  - Anaemia [Recovered/Resolved]
  - Melaena [Recovered/Resolved]

NARRATIVE: CASE EVENT DATE: 20151218
